FAERS Safety Report 10762719 (Version 1)
Quarter: 2015Q1

REPORT INFORMATION
  Report Type: Spontaneous
  Country: US (occurrence: US)
  Receive Date: 20150204
  Receipt Date: 20150204
  Transmission Date: 20150721
  Serious: Yes (Hospitalization)
  Sender: FDA-Public Use
  Company Number: US-BIOMARINAP-US-2015-105425

PATIENT
  Sex: Female

DRUGS (1)
  1. ALDURAZYME [Suspect]
     Active Substance: LARONIDASE
     Indication: MUCOPOLYSACCHARIDOSIS
     Dosage: 8.75 MG, QW
     Route: 042
     Dates: start: 20110718

REACTIONS (3)
  - Cardiac arrest [Unknown]
  - Dyspnoea [Unknown]
  - Shunt infection [Unknown]

NARRATIVE: CASE EVENT DATE: 20141226
